FAERS Safety Report 16861022 (Version 2)
Quarter: 2019Q4

REPORT INFORMATION
  Report Type: Spontaneous
  Country: AU (occurrence: AU)
  Receive Date: 20190927
  Receipt Date: 20191007
  Transmission Date: 20200122
  Serious: Yes (Other)
  Sender: FDA-Public Use
  Company Number: AU-APOTEX-2019AP022332

PATIENT
  Age: 12 Year
  Sex: Female

DRUGS (3)
  1. APO-FLUVOXAMINE [Suspect]
     Active Substance: FLUVOXAMINE MALEATE
     Indication: PHOBIA
     Dosage: 0.5 DF, UNK
  2. APO-FLUVOXAMINE [Suspect]
     Active Substance: FLUVOXAMINE MALEATE
     Dosage: 1 DF, QD
     Route: 048
     Dates: start: 20190507
  3. APO-FLUVOXAMINE [Suspect]
     Active Substance: FLUVOXAMINE MALEATE
     Indication: ANXIETY
     Dosage: 0.25 DF, UNK
     Route: 065

REACTIONS (3)
  - Papilloedema [Not Recovered/Not Resolved]
  - Erythema [Unknown]
  - Visual impairment [Not Recovered/Not Resolved]
